FAERS Safety Report 11101538 (Version 1)
Quarter: 2015Q2

REPORT INFORMATION
  Report Type: Other
  Country: DE (occurrence: DE)
  Receive Date: 20150508
  Receipt Date: 20150508
  Transmission Date: 20150821
  Serious: Yes (Hospitalization)
  Sender: FDA-Public Use
  Company Number: DE-MYLANLABS-2015M1014565

PATIENT

DRUGS (6)
  1. PIPERACILLIN AND TAZOBACTAM [Suspect]
     Active Substance: PIPERACILLIN SODIUM\TAZOBACTAM SODIUM
     Indication: CHOLANGITIS
     Dosage: 2 DF, UNK
     Route: 042
     Dates: start: 20150210, end: 20150211
  2. BETAXOLOL 20 [Concomitant]
     Dosage: 2 DF, UNK
     Route: 048
  3. NOVALGIN [Concomitant]
     Active Substance: METAMIZOLE SODIUM
     Indication: ABDOMINAL PAIN UPPER
     Dosage: 1 G, TID (DAILY DOSE: 3 G GRAM(S) EVERY DAYS)
     Route: 042
  4. TRANXILIUM [Concomitant]
     Active Substance: CLORAZEPATE DIPOTASSIUM
     Dosage: 10 MG, QD (DAILY DOSE: 10 MG MILLGRAM(S) EVERY DAYS)
     Route: 048
  5. PIRITRAMID [Concomitant]
     Indication: ABDOMINAL PAIN UPPER
     Dosage: 7.5 MG, TID (DAILY DOSE: 22.5 MG MILLGRAM(S) EVERY DAYS)
     Route: 042
  6. ENOXAPARIN [Concomitant]
     Active Substance: ENOXAPARIN
     Indication: THROMBOSIS PROPHYLAXIS
     Dosage: 40 MG, QD (DAILY DOSE: 40 MG MILLGRAM(S) EVERY DAYS)
     Route: 058

REACTIONS (2)
  - Haemolytic anaemia [Recovering/Resolving]
  - Hyperbilirubinaemia [Recovering/Resolving]

NARRATIVE: CASE EVENT DATE: 20150211
